FAERS Safety Report 4472671-5 (Version None)
Quarter: 2004Q4

REPORT INFORMATION
  Report Type: 
  Country: None (occurrence: None)
  Receive Date: 20041012
  Receipt Date: 20041012
  Transmission Date: 20050328
  Serious: Yes (Hospitalization)
  Sender: FDA-Public Use
  Company Number: None

PATIENT
  Sex: Male
  Weight: 73.4827 kg

DRUGS (8)
  1. IFOSFAMIDE [Suspect]
     Indication: SARCOMA
     Dosage: SEE IMAGE
     Route: 042
     Dates: start: 20040928
  2. EPIRUBICIN [Suspect]
     Dosage: 56 MG DAILY IV
     Route: 042
     Dates: start: 20041001
  3. SENNA [Concomitant]
  4. COLACE [Concomitant]
  5. CIPRO [Concomitant]
  6. VALTREX [Concomitant]
  7. DIFLUCAN [Concomitant]
  8. MG CITRATE [Concomitant]

REACTIONS (3)
  - CONSTIPATION [None]
  - DIARRHOEA [None]
  - NEUTROPENIA [None]
